FAERS Safety Report 6628452-7 (Version None)
Quarter: 2010Q1

REPORT INFORMATION
  Report Type: 
  Country: None (occurrence: None)
  Receive Date: 20100311
  Receipt Date: 20100226
  Transmission Date: 20100710
  Serious: Yes (Other)
  Sender: FDA-Public Use
  Company Number: SE-PFIZER INC-2010025567

PATIENT
  Sex: Female

DRUGS (5)
  1. LYRICA [Suspect]
     Indication: NEURALGIA
     Dosage: 75 MG, 3X/DAY
     Dates: start: 20070101
  2. LYRICA [Suspect]
     Dosage: 75 MG, 1X/DAY
  3. FELODIPINE [Concomitant]
     Dosage: UNK
  4. VESICARE [Concomitant]
     Dosage: UNK
  5. SYMBICORT [Concomitant]
     Dosage: UNK

REACTIONS (5)
  - DIZZINESS [None]
  - GRIP STRENGTH DECREASED [None]
  - MUSCLE SPASMS [None]
  - MUSCLE TWITCHING [None]
  - NASOPHARYNGITIS [None]
